FAERS Safety Report 6599323-X (Version None)
Quarter: 2010Q1

REPORT INFORMATION
  Report Type: 
  Country: None (occurrence: None)
  Receive Date: 20100224
  Receipt Date: 20100216
  Transmission Date: 20100710
  Serious: Yes (Death)
  Sender: FDA-Public Use
  Company Number: IE-WYE-H12389109

PATIENT
  Age: 65 Year
  Sex: Male

DRUGS (14)
  1. CORDARONE [Suspect]
     Indication: ATRIAL FIBRILLATION
     Dosage: DOSE AND FREQUENCY NOT SPECIFIED
     Route: 065
  2. ALDACTONE [Concomitant]
  3. LASIX [Concomitant]
  4. IMDUR [Concomitant]
  5. CYMBALTA [Concomitant]
  6. DOBUTAMINE [Concomitant]
     Dosage: UNKNOWN
     Route: 042
     Dates: start: 20090601
  7. CETIRIZINE HYDROCHLORIDE [Concomitant]
  8. NEXIUM [Concomitant]
  9. SERC ^DUPHAR^ [Concomitant]
  10. OXYCONTIN [Concomitant]
  11. WARFARIN SODIUM [Concomitant]
  12. RAMIPRIL [Concomitant]
  13. RANEXA [Interacting]
     Indication: DRUG USE FOR UNKNOWN INDICATION
     Dosage: 375 MG (FREQUENCY NOT SPECIFIED)
     Route: 065
     Dates: start: 20090703
  14. DALMANE [Concomitant]

REACTIONS (2)
  - CARDIAC FAILURE [None]
  - DRUG INTERACTION [None]
